FAERS Safety Report 4442482-5 (Version None)
Quarter: 2004Q3

REPORT INFORMATION
  Report Type: 
  Country: None (occurrence: None)
  Receive Date: 20040903
  Receipt Date: 20040708
  Transmission Date: 20050211
  Serious: Yes (Other)
  Sender: FDA-Public Use
  Company Number: 2004UW14091

PATIENT
  Sex: Female

DRUGS (1)
  1. CRESTOR [Suspect]

REACTIONS (9)
  - ABDOMINAL PAIN [None]
  - ANOREXIA [None]
  - CONSTIPATION [None]
  - INSOMNIA [None]
  - MYALGIA [None]
  - NAUSEA [None]
  - PHOTOSENSITIVITY REACTION [None]
  - PICA [None]
  - VOMITING [None]
